FAERS Safety Report 25423352 (Version 1)
Quarter: 2025Q2

REPORT INFORMATION
  Report Type: Spontaneous
  Country: US (occurrence: None)
  Receive Date: 20250611
  Receipt Date: 20250611
  Transmission Date: 20250716
  Serious: Yes (Hospitalization)
  Sender: FDA-CTU
  Company Number: None

PATIENT
  Age: 78 Year
  Sex: Male

DRUGS (2)
  1. HYDROCHLOROTHIAZIDE [Suspect]
     Active Substance: HYDROCHLOROTHIAZIDE
     Dosage: FREQUENCY : DAILY;?
     Route: 048
     Dates: start: 20241105, end: 20250508
  2. MIRTAZAPINE [Concomitant]
     Active Substance: MIRTAZAPINE

REACTIONS (7)
  - Hyponatraemia [None]
  - Inappropriate antidiuretic hormone secretion [None]
  - Fatigue [None]
  - Asthenia [None]
  - Confusional state [None]
  - Adrenal insufficiency [None]
  - Neoplasm malignant [None]

NARRATIVE: CASE EVENT DATE: 20250508
